FAERS Safety Report 9100968 (Version 1)
Quarter: 2013Q1

REPORT INFORMATION
  Report Type: Spontaneous
  Country: BR (occurrence: BR)
  Receive Date: 20130215
  Receipt Date: 20130215
  Transmission Date: 20140127
  Serious: No
  Sender: FDA-Public Use
  Company Number: CHNY2013BR000489

PATIENT
  Age: 50 Year
  Sex: Female

DRUGS (1)
  1. LAMISILATE [Suspect]
     Indication: TINEA PEDIS
     Dosage: 1 DF, QD
     Route: 061

REACTIONS (2)
  - Drug ineffective [Not Recovered/Not Resolved]
  - Incorrect drug administration duration [Unknown]
